FAERS Safety Report 4634746-7 (Version None)
Quarter: 2005Q2

REPORT INFORMATION
  Report Type: 
  Country: None (occurrence: None)
  Receive Date: 20050412
  Receipt Date: 20050412
  Transmission Date: 20051028
  Serious: Yes (Hospitalization)
  Sender: FDA-Public Use
  Company Number: None

PATIENT
  Age: 68 Year
  Sex: Male
  Weight: 91.173 kg

DRUGS (4)
  1. GLUCOVANCE [Suspect]
     Indication: DIABETES MELLITUS NON-INSULIN-DEPENDENT
     Dosage: 5/500 BID ORAL
     Route: 048
     Dates: start: 20040629, end: 20040703
  2. LASIX [Concomitant]
  3. POTASSIUM CHLORIDE [Concomitant]
  4. VALSARTEN [Concomitant]

REACTIONS (1)
  - DYSPNOEA [None]
